FAERS Safety Report 5981959-8 (Version None)
Quarter: 2008Q4

REPORT INFORMATION
  Report Type: 
  Country: None (occurrence: None)
  Receive Date: 20081202
  Receipt Date: 20081118
  Transmission Date: 20090506
  Serious: Yes (Death)
  Sender: FDA-Public Use
  Company Number: 2008AL010372

PATIENT
  Age: 80 Year
  Sex: Male
  Weight: 83.9154 kg

DRUGS (7)
  1. DIGOXIN [Suspect]
     Indication: CARDIAC FAILURE CONGESTIVE
     Dosage: 0.125MG, BID, PO
     Route: 048
     Dates: start: 20041012, end: 20080430
  2. AMIODARONE HCL [Concomitant]
  3. METOPROLOL [Concomitant]
  4. FUROSEMIDE [Concomitant]
  5. ENALAPRIL MALEATE [Concomitant]
  6. SPIRONOLACTONE [Concomitant]
  7. AMBIEN [Concomitant]

REACTIONS (1)
  - HYPERSENSITIVITY [None]
